FAERS Safety Report 9752528 (Version 2)
Quarter: 2014Q1

REPORT INFORMATION
  Report Type: Spontaneous
  Country: CZ (occurrence: CZ)
  Receive Date: 20131213
  Receipt Date: 20140211
  Transmission Date: 20141002
  Serious: Yes (Hospitalization, Disabling, Other)
  Sender: FDA-Public Use
  Company Number: CZ-ROCHE-1319143

PATIENT
  Age: 36 Year
  Sex: Female

DRUGS (2)
  1. PEGASYS [Suspect]
     Indication: CHRONIC HEPATITIS C
     Route: 058
     Dates: start: 20120112, end: 20121213
  2. COPEGUS [Suspect]
     Indication: CHRONIC HEPATITIS C
     Dosage: 3-0-3
     Route: 048
     Dates: start: 20120112, end: 20121213

REACTIONS (3)
  - Pulmonary hypertension [Unknown]
  - Pulmonary fibrosis [Not Recovered/Not Resolved]
  - Hepatitis C [Unknown]
